FAERS Safety Report 5559179-0 (Version None)
Quarter: 2007Q4

REPORT INFORMATION
  Report Type: 
  Country: None (occurrence: None)
  Receive Date: 20071214
  Receipt Date: 20070920
  Transmission Date: 20080405
  Serious: No
  Sender: FDA-Public Use
  Company Number: US-ABBOTT-07P-163-0418016-00

PATIENT
  Sex: Female
  Weight: 44.492 kg

DRUGS (3)
  1. HUMIRA [Suspect]
     Indication: ANKYLOSING SPONDYLITIS
     Dosage: PEN
     Route: 058
     Dates: start: 20070801
  2. HUMIRA [Suspect]
     Dosage: SYRINGE
     Route: 058
     Dates: start: 20060801, end: 20070801
  3. UNSPECIFIED MEDICATIONS [Concomitant]

REACTIONS (1)
  - INJECTION SITE BRUISING [None]
